FAERS Safety Report 5076628-5 (Version None)
Quarter: 2006Q3

REPORT INFORMATION
  Report Type: 
  Country: None (occurrence: None)
  Receive Date: 20060725
  Receipt Date: 20060124
  Transmission Date: 20061208
  Serious: No
  Sender: FDA-Public Use
  Company Number: 200610516BWH

PATIENT
  Age: 67 Year
  Sex: Male

DRUGS (4)
  1. NEXAVAR [Suspect]
     Indication: METASTATIC RENAL CELL CARCINOMA
     Dosage: SEE IMAGE
     Route: 048
     Dates: start: 20060111
  2. NEXAVAR [Suspect]
     Indication: METASTATIC RENAL CELL CARCINOMA
     Dosage: SEE IMAGE
     Route: 048
     Dates: start: 20060206
  3. BENAZEPRIL HYDROCHLORIDE [Concomitant]
  4. LOTREL [Concomitant]

REACTIONS (10)
  - ALOPECIA [None]
  - DRY SKIN [None]
  - DYSURIA [None]
  - ERYTHEMA [None]
  - FLANK PAIN [None]
  - NAUSEA [None]
  - PAIN OF SKIN [None]
  - RASH [None]
  - RASH GENERALISED [None]
  - URINARY TRACT INFECTION [None]
